FAERS Safety Report 13022082 (Version 4)
Quarter: 2017Q2

REPORT INFORMATION
  Report Type: Spontaneous
  Country: US (occurrence: US)
  Receive Date: 20161213
  Receipt Date: 20170522
  Transmission Date: 20170830
  Serious: No
  Sender: FDA-Public Use
  Company Number: US-ELI_LILLY_AND_COMPANY-US201612001789

PATIENT
  Age: 62 Year
  Sex: Male

DRUGS (6)
  1. TRULICITY [Suspect]
     Active Substance: DULAGLUTIDE
     Dosage: 0.75 MG, WEEKLY (1/W)
     Route: 065
  2. LOSARTAN. [Concomitant]
     Active Substance: LOSARTAN
     Indication: BLOOD PRESSURE MEASUREMENT
     Dosage: 125 MG, EACH MORNING
  3. METFORMIN [Concomitant]
     Active Substance: METFORMIN HYDROCHLORIDE
     Indication: PRODUCT USED FOR UNKNOWN INDICATION
  4. TRULICITY [Suspect]
     Active Substance: DULAGLUTIDE
     Indication: GLYCOSYLATED HAEMOGLOBIN INCREASED
     Dosage: 1.5 MG, WEEKLY (1/W)
     Route: 065
     Dates: start: 20161127
  5. LODIPINE                           /00972402/ [Concomitant]
     Indication: BLOOD PRESSURE MEASUREMENT
     Dosage: UNK, EACH EVENING
  6. TRULICITY [Suspect]
     Active Substance: DULAGLUTIDE
     Indication: TYPE 2 DIABETES MELLITUS
     Dosage: 0.75 MG, WEEKLY (1/W)
     Route: 065

REACTIONS (9)
  - Nausea [Recovering/Resolving]
  - Influenza [Recovering/Resolving]
  - Body temperature decreased [Recovering/Resolving]
  - Drug dose omission [Recovering/Resolving]
  - Drug dose omission [Unknown]
  - Skin sensitisation [Recovering/Resolving]
  - Drug prescribing error [Recovering/Resolving]
  - Arthralgia [Recovering/Resolving]
  - Injection site pain [Recovered/Resolved]

NARRATIVE: CASE EVENT DATE: 20161127
